FAERS Safety Report 8508948-3 (Version None)
Quarter: 2012Q3

REPORT INFORMATION
  Report Type: 
  Country: None (occurrence: None)
  Receive Date: 20120713
  Receipt Date: 20120705
  Transmission Date: 20120928
  Serious: Yes (Hospitalization)
  Sender: FDA-Public Use
  Company Number: US-ASTRAZENECA-2012SE37651

PATIENT
  Age: 58 Year
  Sex: Female
  Weight: 54.1 kg

DRUGS (11)
  1. PRADAXA [Concomitant]
  2. LASIX [Concomitant]
  3. OXYCODONE HCL [Concomitant]
  4. GLUCOPHAGE [Concomitant]
  5. KLONOPIN [Concomitant]
  6. CARDIZEM [Concomitant]
  7. LOPRESSOR [Concomitant]
  8. FASLODEX [Suspect]
     Indication: BREAST CANCER
     Route: 030
     Dates: start: 20110519
  9. DIGOXIN [Concomitant]
  10. DULCOLAX [Concomitant]
  11. ATROVENT [Concomitant]

REACTIONS (10)
  - HEART RATE INCREASED [None]
  - PALPITATIONS [None]
  - BLOOD PRESSURE INCREASED [None]
  - FLUSHING [None]
  - CHEST PAIN [None]
  - ANXIETY [None]
  - HYPERSENSITIVITY [None]
  - TREMOR [None]
  - THROAT IRRITATION [None]
  - LIP DRY [None]
